FAERS Safety Report 4911914-8 (Version None)
Quarter: 2006Q1

REPORT INFORMATION
  Report Type: 
  Country: None (occurrence: None)
  Receive Date: 20060208
  Receipt Date: 20060208
  Transmission Date: 20060701
  Serious: No
  Sender: FDA-Public Use
  Company Number: None

PATIENT
  Sex: Male
  Weight: 75.6 kg

DRUGS (1)
  1. SERTRALINE [Suspect]
     Indication: ERECTILE DYSFUNCTION
     Dosage: 100MG   AS DIRECTED   PO
     Route: 048
     Dates: start: 20051216, end: 20060207

REACTIONS (2)
  - DRUG DISPENSING ERROR [None]
  - MEDICATION ERROR [None]
